FAERS Safety Report 24328283 (Version 1)
Quarter: 2024Q3

REPORT INFORMATION
  Report Type: Spontaneous
  Country: US (occurrence: US)
  Receive Date: 20240917
  Receipt Date: 20240917
  Transmission Date: 20241017
  Serious: No
  Sender: SUNOVION
  Company Number: US-SUMITOMO PHARMA SWITZERLAND GMBH-2024SPA001767

PATIENT

DRUGS (1)
  1. GEMTESA [Suspect]
     Active Substance: VIBEGRON
     Dosage: UNK
     Route: 048
     Dates: start: 202408

REACTIONS (2)
  - Hypertension [Unknown]
  - Pain in extremity [Unknown]

NARRATIVE: CASE EVENT DATE: 20240801
